FAERS Safety Report 17370542 (Version 1)
Quarter: 2020Q1

REPORT INFORMATION
  Report Type: Spontaneous
  Country: FR (occurrence: FR)
  Receive Date: 20200205
  Receipt Date: 20200205
  Transmission Date: 20200409
  Serious: Yes (Hospitalization)
  Sender: FDA-Public Use
  Company Number: FR-TEVA-2020-FR-1181539

PATIENT
  Age: 71 Year
  Sex: Male
  Weight: 103 kg

DRUGS (21)
  1. TRESIBA [Concomitant]
     Active Substance: INSULIN DEGLUDEC
     Route: 058
  2. PANTOPRAZOLE [Concomitant]
     Active Substance: PANTOPRAZOLE
     Route: 048
  3. ACIDE FOLINIQUE [Concomitant]
     Active Substance: LEUCOVORIN
     Route: 041
  4. SOTALOL (CHLORHYDRATE DE) [Concomitant]
     Active Substance: SOTALOL
     Route: 048
  5. PARACETAMOL [Concomitant]
     Active Substance: ACETAMINOPHEN
     Route: 048
  6. RACECADOTRIL [Concomitant]
     Active Substance: RACECADOTRIL
     Route: 048
  7. ENTRESTO [Concomitant]
     Active Substance: SACUBITRIL\VALSARTAN
     Route: 048
  8. GLICLAZIDE [Concomitant]
     Active Substance: GLICLAZIDE
     Route: 048
  9. SMECTA [Concomitant]
     Active Substance: MONTMORILLONITE
     Route: 048
  10. ARIXTRA [Concomitant]
     Active Substance: FONDAPARINUX SODIUM
     Route: 058
  11. IRINOTECAN [Suspect]
     Active Substance: IRINOTECAN
     Indication: ADENOCARCINOMA PANCREAS
     Dosage: FOLFIRINOX PROTOCOL WITH 50% IRINOTECAN; 90 MG/M2
     Route: 041
     Dates: start: 20191118, end: 20191118
  12. METFORMINE [Concomitant]
     Active Substance: METFORMIN HYDROCHLORIDE
     Route: 048
  13. DESLORATADINE. [Concomitant]
     Active Substance: DESLORATADINE
     Route: 048
  14. OXALIPLATINE [Suspect]
     Active Substance: OXALIPLATIN
     Indication: ADENOCARCINOMA PANCREAS
     Dosage: FOLFIRINOX PROTOCOL WITH 100% OXALIPLATIN; 85 MG/M2
     Route: 041
     Dates: start: 20191118, end: 20191118
  15. FLUOROURACILE ACCORD [Suspect]
     Active Substance: FLUOROURACIL
     Dosage: FOLFIRINOX PROTOCOL WITH 50% 5FU
     Route: 041
     Dates: start: 20191118, end: 20191119
  16. FUROSEMIDE. [Concomitant]
     Active Substance: FUROSEMIDE
     Route: 048
  17. IVABRADINE [Concomitant]
     Active Substance: IVABRADINE
     Route: 048
  18. HYDROXYZINE (CHLORHYDRATE D^) [Concomitant]
     Active Substance: HYDROXYZINE HYDROCHLORIDE
     Route: 048
  19. IRINOTECAN [Suspect]
     Active Substance: IRINOTECAN
     Dosage: FOLFIRINOX PROTOCOL WITH 50% IRINOTECAN
     Route: 041
     Dates: start: 20191118, end: 20191118
  20. FLUOROURACILE ACCORD [Suspect]
     Active Substance: FLUOROURACIL
     Indication: ADENOCARCINOMA PANCREAS
     Dosage: FOLFIRINOX PROTOCOL WITH 50% 5FU; 600MG/M2
     Route: 041
     Dates: start: 20191118, end: 20191119
  21. POTASSIUM (CHLORURE DE) [Concomitant]
     Route: 048

REACTIONS (3)
  - Acute kidney injury [Recovered/Resolved]
  - Diarrhoea [Recovered/Resolved]
  - Hypokalaemia [Recovered/Resolved]

NARRATIVE: CASE EVENT DATE: 20191118
